FAERS Safety Report 7617217-5 (Version None)
Quarter: 2011Q3

REPORT INFORMATION
  Report Type: 
  Country: None (occurrence: None)
  Receive Date: 20110718
  Receipt Date: 20110705
  Transmission Date: 20111222
  Serious: Yes (Hospitalization, Other)
  Sender: FDA-Public Use
  Company Number: US-BAYER-2011-042549

PATIENT
  Age: 22 Year
  Sex: Female
  Weight: 81.633 kg

DRUGS (17)
  1. AMPICILLIN SODIUM [Concomitant]
     Dosage: 500 MG, UNK
     Route: 048
  2. VALACICLOVIR [Concomitant]
     Dosage: 500 MG, UNK
     Route: 048
  3. ORTHO TRI-CYCLEN [Concomitant]
     Indication: CONTRACEPTION
     Dosage: UNK
     Dates: start: 20010101
  4. DIPHENHYDRAMINE HCL [Concomitant]
     Dosage: 50 MG, UNK
     Route: 048
  5. LEVOTHYROXINE SODIUM [Concomitant]
     Dosage: 100 ?G, UNK
     Route: 048
  6. SEROQUEL [Concomitant]
     Indication: BIPOLAR DISORDER
     Dosage: 300 UNK, UNK
  7. ZOLOFT [Concomitant]
     Indication: BIPOLAR DISORDER
  8. OMEPRAZOLE [Concomitant]
     Dosage: 20 MG, UNK
     Route: 048
  9. NAPROXEN [Concomitant]
     Dosage: 500 MG, UNK
     Route: 048
  10. YAZ [Suspect]
     Indication: ACNE
  11. ORTHO TRI-CYCLEN [Concomitant]
     Indication: ACNE
     Dosage: UNK
     Dates: start: 20081201, end: 20090701
  12. WELLBUTRIN [Concomitant]
  13. LITHIUM CARBONATE [Concomitant]
  14. PAXIL [Concomitant]
  15. YAZ [Suspect]
     Indication: CONTRACEPTION
     Dosage: UNK, QD
     Route: 048
     Dates: start: 20010101, end: 20090101
  16. LAMICTAL [Concomitant]
     Indication: BIPOLAR DISORDER
     Dosage: 200 MG, UNK
     Route: 048
  17. HALDOL [Concomitant]

REACTIONS (3)
  - CHOLECYSTITIS CHRONIC [None]
  - GALLBLADDER DISORDER [None]
  - ABDOMINAL PAIN [None]
